FAERS Safety Report 22370085 (Version 1)
Quarter: 2023Q2

REPORT INFORMATION
  Report Type: Spontaneous
  Country: US (occurrence: US)
  Receive Date: 20230526
  Receipt Date: 20230526
  Transmission Date: 20230721
  Serious: Yes (Death, Hospitalization, Other)
  Sender: FDA-Public Use
  Company Number: US-NOVOPROD-1066523

PATIENT
  Age: 28 Year
  Sex: Female

DRUGS (1)
  1. OZEMPIC [Suspect]
     Active Substance: SEMAGLUTIDE
     Indication: Weight decreased
     Dosage: UNK
     Route: 058
     Dates: start: 20230411, end: 20230511

REACTIONS (9)
  - Multiple organ dysfunction syndrome [Fatal]
  - Shock [Fatal]
  - Colitis [Not Recovered/Not Resolved]
  - Acute hepatic failure [Not Recovered/Not Resolved]
  - Cardiac tamponade [Unknown]
  - Atypical haemolytic uraemic syndrome [Not Recovered/Not Resolved]
  - Leukaemoid reaction [Not Recovered/Not Resolved]
  - Acute kidney injury [Not Recovered/Not Resolved]
  - Product use in unapproved indication [Recovered/Resolved]

NARRATIVE: CASE EVENT DATE: 20230511
